FAERS Safety Report 12711507 (Version 3)
Quarter: 2016Q4

REPORT INFORMATION
  Report Type: Spontaneous
  Country: NL (occurrence: NL)
  Receive Date: 20160902
  Receipt Date: 20161020
  Transmission Date: 20170207
  Serious: Yes (Hospitalization, Other)
  Sender: FDA-Public Use
  Company Number: NL-GE HEALTHCARE MEDICAL DIAGNOSTICS-VISP-PR-1609S-0523

PATIENT
  Age: 58 Year
  Sex: Female
  Weight: 46 kg

DRUGS (9)
  1. NEBIVOLOL. [Concomitant]
     Active Substance: NEBIVOLOL
  2. PANTOPRAZOL [Concomitant]
     Active Substance: PANTOPRAZOLE SODIUM
  3. IRBESARTAN. [Concomitant]
     Active Substance: IRBESARTAN
  4. ALFACALCIDOL [Concomitant]
     Active Substance: ALFACALCIDOL
  5. AMLODIPINE [Concomitant]
     Active Substance: AMLODIPINE BESYLATE
  6. SEVELAMER [Concomitant]
     Active Substance: SEVELAMER
  7. VISIPAQUE [Suspect]
     Active Substance: IODIXANOL
     Indication: EPISTAXIS
     Route: 013
     Dates: start: 20160407, end: 20160407
  8. VISIPAQUE [Suspect]
     Active Substance: IODIXANOL
     Indication: DIAGNOSTIC PROCEDURE
  9. DOXAZOSIN [Concomitant]
     Active Substance: DOXAZOSIN\DOXAZOSIN MESYLATE

REACTIONS (4)
  - Neurologic neglect syndrome [Recovered/Resolved]
  - Paraesthesia [Recovered/Resolved]
  - Blindness transient [Recovered/Resolved]
  - Hemiparesis [Recovered/Resolved]

NARRATIVE: CASE EVENT DATE: 20160407
